FAERS Safety Report 11784601 (Version 2)
Quarter: 2015Q4

REPORT INFORMATION
  Report Type: Spontaneous
  Country: JP (occurrence: JP)
  Receive Date: 20151130
  Receipt Date: 20151210
  Transmission Date: 20160305
  Serious: Yes (Other)
  Sender: FDA-Public Use
  Company Number: JP-MACLEODS PHARMACEUTICALS US LTD-MAC2015002041

PATIENT

DRUGS (1)
  1. PRAMIPEXOLE. [Suspect]
     Active Substance: PRAMIPEXOLE
     Indication: COTARD^S SYNDROME
     Route: 065

REACTIONS (3)
  - Medication error [Recovered/Resolved]
  - Abnormal behaviour [Recovered/Resolved]
  - Product use issue [Recovered/Resolved]
